FAERS Safety Report 12732554 (Version 1)
Quarter: 2016Q3

REPORT INFORMATION
  Report Type: Spontaneous
  Country: TR (occurrence: TR)
  Receive Date: 20160912
  Receipt Date: 20160912
  Transmission Date: 20161109
  Serious: Yes (Hospitalization)
  Sender: FDA-Public Use
  Company Number: TR-CMP PHARMA-2016CMP00014

PATIENT
  Age: 11 Year
  Sex: Female

DRUGS (1)
  1. ISONIAZID. [Suspect]
     Active Substance: ISONIAZID
     Indication: ANTIBIOTIC PROPHYLAXIS
     Dosage: 300 MG, 1X/DAY
     Route: 065

REACTIONS (2)
  - Substance-induced psychotic disorder [Recovered/Resolved]
  - Obsessive-compulsive symptom [Recovered/Resolved]
